FAERS Safety Report 10166966 (Version 2)
Quarter: 2014Q2

REPORT INFORMATION
  Report Type: Spontaneous
  Country: US (occurrence: US)
  Receive Date: 20140512
  Receipt Date: 20140521
  Transmission Date: 20141212
  Serious: No
  Sender: FDA-Public Use
  Company Number: US-PFIZER INC-2014129528

PATIENT
  Age: 46 Year
  Sex: Female
  Weight: 71.66 kg

DRUGS (3)
  1. LYRICA [Suspect]
     Indication: FIBROMYALGIA
     Dosage: 150 MG, 3X/DAY
     Route: 048
     Dates: start: 200705
  2. LYRICA [Suspect]
     Indication: NERVE INJURY
     Dosage: 150 MG, 2X/DAY
     Dates: end: 201405
  3. TRAMADOL HCL [Suspect]
     Indication: PAIN
     Dosage: UNK

REACTIONS (3)
  - Drug effect incomplete [Unknown]
  - Hyperhidrosis [Unknown]
  - Restless legs syndrome [Unknown]
